FAERS Safety Report 18148284 (Version 2)
Quarter: 2020Q3

REPORT INFORMATION
  Report Type: Other
  Country: US (occurrence: US)
  Receive Date: 20200814
  Receipt Date: 20200827
  Transmission Date: 20201103
  Serious: Yes (Other)
  Sender: FDA-Public Use
  Company Number: US-ROCHE-2657615

PATIENT
  Sex: Female

DRUGS (26)
  1. AUVI?Q [Concomitant]
     Active Substance: EPINEPHRINE
  2. FLUOCINOLONE [Concomitant]
     Active Substance: FLUOCINOLONE
     Dosage: APPLY TO THE AFFECTED AREA(S) (NAPE OF NECK) BY TOPICAL ROUTE
     Route: 061
     Dates: start: 20180215
  3. IBUPROFEN. [Concomitant]
     Active Substance: IBUPROFEN
     Route: 048
     Dates: start: 20191228
  4. ONDANSETRON [Concomitant]
     Active Substance: ONDANSETRON
     Route: 048
     Dates: start: 20190429
  5. XOLAIR [Suspect]
     Active Substance: OMALIZUMAB
     Indication: ASTHMA
     Route: 058
     Dates: start: 20200114
  6. XOLAIR [Suspect]
     Active Substance: OMALIZUMAB
  7. XOLAIR [Suspect]
     Active Substance: OMALIZUMAB
  8. AMITRIPTYLINE [Concomitant]
     Active Substance: AMITRIPTYLINE
     Dates: start: 20171229
  9. HYOSCYAMINE. [Concomitant]
     Active Substance: HYOSCYAMINE
     Route: 060
     Dates: start: 20171228
  10. PROMETHAZINE [Concomitant]
     Active Substance: PROMETHAZINE HYDROCHLORIDE
     Dates: start: 20180401
  11. BREO ELLIPTA [Concomitant]
     Active Substance: FLUTICASONE FUROATE\VILANTEROL TRIFENATATE
     Dosage: LNHALE 1 PUFF(S) EVERY DAY BY INHALATION ROUTE.
     Route: 055
     Dates: start: 20181114
  12. BUTALBITAL, ACETAMINOPHEN, AND CAFFEINE [Concomitant]
     Active Substance: ACETAMINOPHEN\BUTALBITAL\CAFFEINE
     Dosage: 50 MG?325 MG?40 MG
     Dates: start: 20140604
  13. XOLAIR [Suspect]
     Active Substance: OMALIZUMAB
  14. ALINIA [Concomitant]
     Active Substance: NITAZOXANIDE
     Dates: start: 20180420
  15. ESOMEPRAZOLE MAGNESIUM. [Concomitant]
     Active Substance: ESOMEPRAZOLE MAGNESIUM
     Dosage: DELAYED RELEASE TABLET
     Route: 048
     Dates: start: 20171228
  16. MOVIPREP [Concomitant]
     Active Substance: ASCORBIC ACID\POLYETHYLENE GLYCOL 3350\POTASSIUM CHLORIDE\SODIUM ASCORBATE\SODIUM CHLORIDE\SODIUM SULFATE
     Dosage: 100 GRAM?7.5 GRAM?2.691 GRAM ORAL POWDER PACKET
     Route: 048
     Dates: start: 20180417
  17. ONDANSETRON HYDROCHLORIDE. [Concomitant]
     Active Substance: ONDANSETRON HYDROCHLORIDE
     Route: 048
     Dates: start: 20190103
  18. XOLAIR [Suspect]
     Active Substance: OMALIZUMAB
     Dosage: SITE: ARM, LEFT UPPER
     Route: 058
     Dates: start: 20200710
  19. OMEPRAZOLE. [Concomitant]
     Active Substance: OMEPRAZOLE
     Dosage: DELAYED RELEASE CAPSULE.
     Route: 048
     Dates: start: 20180401
  20. SPIRIVA RESPIMAT [Concomitant]
     Active Substance: TIOTROPIUM BROMIDE
     Dosage: LNHALE 2 PUFF(S) EVERY DAY BY INHALATION ROUTE.
     Route: 055
     Dates: start: 20181114
  21. FLUTICASONE PROPIONATE. [Concomitant]
     Active Substance: FLUTICASONE PROPIONATE
     Dosage: LNHALE 2 SPRAY(S) EVERY DAY BY INTRANASAL ROUTE.
     Route: 045
     Dates: start: 20140825
  22. TRIMETHOBENZAMIDE [Concomitant]
     Active Substance: TRIMETHOBENZAMIDE
     Dates: start: 20180417
  23. XOLAIR [Suspect]
     Active Substance: OMALIZUMAB
  24. ALBUTEROL SULFATE. [Concomitant]
     Active Substance: ALBUTEROL SULFATE
     Dosage: USE 1 VIAL PER NEBULIZER THREE TIMES DAILY AS NEEDED
     Dates: start: 20180215
  25. MONTELUKAST [Concomitant]
     Active Substance: MONTELUKAST SODIUM
     Route: 048
     Dates: start: 20180421
  26. PREDNISONE. [Concomitant]
     Active Substance: PREDNISONE
     Route: 048
     Dates: start: 20180215

REACTIONS (1)
  - Anaphylactic reaction [Unknown]
